FAERS Safety Report 12918040 (Version 2)
Quarter: 2016Q4

REPORT INFORMATION
  Report Type: Spontaneous
  Country: US (occurrence: US)
  Receive Date: 20161107
  Receipt Date: 20161121
  Transmission Date: 20170207
  Serious: Yes (Other)
  Sender: FDA-Public Use
  Company Number: US-BAYER-2016-210096

PATIENT
  Age: 60 Year
  Sex: Female

DRUGS (2)
  1. ACETYLSALICYLIC ACID (} 100 MG) [Suspect]
     Active Substance: ASPIRIN
  2. CLOPIDOGREL [Interacting]
     Active Substance: CLOPIDOGREL BISULFATE

REACTIONS (7)
  - Haematemesis [None]
  - Upper gastrointestinal haemorrhage [None]
  - Labelled drug-drug interaction medication error [None]
  - Melaena [None]
  - Drug administration error [None]
  - Haemoglobin decreased [Recovering/Resolving]
  - Hypotension [None]
